FAERS Safety Report 6803250-X (Version None)
Quarter: 2010Q2

REPORT INFORMATION
  Report Type: 
  Country: None (occurrence: None)
  Receive Date: 20100628
  Receipt Date: 20100520
  Transmission Date: 20101027
  Serious: No
  Sender: FDA-Public Use
  Company Number: US-BAXTER-2010BH001609

PATIENT
  Age: 67 Year
  Sex: Female
  Weight: 62 kg

DRUGS (1)
  1. HEPARIN SODIUM [Suspect]
     Indication: VASCULAR OPERATION
     Route: 042
     Dates: start: 20080406, end: 20080515

REACTIONS (1)
  - DRUG HYPERSENSITIVITY [None]
